FAERS Safety Report 4577948-0 (Version None)
Quarter: 2005Q1

REPORT INFORMATION
  Report Type: 
  Country: None (occurrence: None)
  Receive Date: 20050127
  Receipt Date: 20040830
  Transmission Date: 20050727
  Serious: No
  Sender: FDA-Public Use
  Company Number: USA040876930

PATIENT
  Age: 7 Year
  Sex: Male
  Weight: 22 kg

DRUGS (3)
  1. STRATTERA [Suspect]
     Indication: ATTENTION DEFICIT/HYPERACTIVITY DISORDER
     Dosage: 40 MG/L DAY
     Dates: start: 20021201
  2. RISPERDAL [Concomitant]
  3. CLARITINE (LORATADINE) [Concomitant]

REACTIONS (6)
  - AGGRESSION [None]
  - DRUG INEFFECTIVE [None]
  - DYSPHONIA [None]
  - PRESCRIBED OVERDOSE [None]
  - PSYCHOMOTOR HYPERACTIVITY [None]
  - SOMNOLENCE [None]
